FAERS Safety Report 10063983 (Version 2)
Quarter: 2014Q2

REPORT INFORMATION
  Report Type: Spontaneous
  Country: CA (occurrence: CA)
  Receive Date: 20140408
  Receipt Date: 20140430
  Transmission Date: 20141212
  Serious: Yes (Hospitalization)
  Sender: FDA-Public Use
  Company Number: CA-ROCHE-1378392

PATIENT
  Age: 82 Year
  Sex: Male

DRUGS (8)
  1. XOLAIR [Suspect]
     Indication: ASTHMA
     Route: 058
     Dates: start: 20090720
  2. AERIUS [Concomitant]
  3. SYMBICORT [Concomitant]
  4. SPIRIVA [Concomitant]
  5. SINGULAIR [Concomitant]
  6. NASONEX [Concomitant]
  7. BRICANYL [Concomitant]
  8. ESOMEPRAZOLE SODIUM [Concomitant]

REACTIONS (1)
  - Pneumonia [Unknown]
